FAERS Safety Report 5324518-2 (Version None)
Quarter: 2007Q2

REPORT INFORMATION
  Report Type: 
  Country: None (occurrence: None)
  Receive Date: 20070514
  Receipt Date: 20070502
  Transmission Date: 20071010
  Serious: Yes (Hospitalization, Other)
  Sender: FDA-Public Use
  Company Number: US-PFIZER INC-2007036159

PATIENT
  Sex: Female
  Weight: 56.818 kg

DRUGS (5)
  1. LYRICA [Suspect]
     Indication: SCIATICA
     Dates: start: 20061201, end: 20070101
  2. LIPITOR [Concomitant]
  3. ACETYLSALICYLIC ACID SRT [Concomitant]
  4. LEVOTHYROXINE SODIUM [Concomitant]
  5. FLEXERIL [Concomitant]

REACTIONS (3)
  - AURA [None]
  - DRUG INEFFECTIVE [None]
  - GASTRITIS [None]
